FAERS Safety Report 10152310 (Version 1)
Quarter: 2014Q2

REPORT INFORMATION
  Report Type: Spontaneous
  Country: IL (occurrence: None)
  Receive Date: 20140501
  Receipt Date: 20140501
  Transmission Date: 20141212
  Serious: Yes (Other)
  Sender: FDA-Public Use
  Company Number: 2014IL00406

PATIENT
  Age: 54 Year
  Sex: Male

DRUGS (1)
  1. TOPIRAMATE (TOPIRAMATE) [Suspect]

REACTIONS (2)
  - Uveitis [None]
  - Angle closure glaucoma [None]
